FAERS Safety Report 8017912-2 (Version None)
Quarter: 2012Q1

REPORT INFORMATION
  Report Type: 
  Country: None (occurrence: None)
  Receive Date: 20120103
  Receipt Date: 20111226
  Transmission Date: 20120608
  Serious: Yes (Hospitalization)
  Sender: FDA-Public Use
  Company Number: FR-JNJFOC-20111211552

PATIENT
  Sex: Female

DRUGS (11)
  1. XARELTO [Suspect]
     Indication: THROMBOSIS PROPHYLAXIS
     Route: 048
     Dates: start: 20111027, end: 20111028
  2. NICARDIPINE HCL [Concomitant]
     Route: 048
     Dates: start: 20111027, end: 20111028
  3. MORPHINE SULFATE [Concomitant]
     Route: 048
     Dates: start: 20111027, end: 20111031
  4. SECTRAL [Concomitant]
     Route: 048
  5. ACETAMINOPHEN [Concomitant]
     Route: 042
     Dates: start: 20111027, end: 20111031
  6. TRAMADOL HCL [Concomitant]
     Route: 048
     Dates: start: 20111027, end: 20111029
  7. CEFAZOLIN [Concomitant]
     Route: 042
     Dates: start: 20111027, end: 20111028
  8. ALLOPURINOL [Concomitant]
     Route: 048
  9. PRINIVIL [Concomitant]
     Route: 048
     Dates: end: 20111027
  10. LIPANOR [Concomitant]
     Route: 048
  11. ZOLPIDEM [Concomitant]
     Route: 048

REACTIONS (1)
  - PULMONARY EMBOLISM [None]
